FAERS Safety Report 16210008 (Version 1)
Quarter: 2019Q2

REPORT INFORMATION
  Report Type: Spontaneous
  Country: HR (occurrence: HR)
  Receive Date: 20190417
  Receipt Date: 20190417
  Transmission Date: 20190711
  Serious: Yes (Hospitalization, Other)
  Sender: FDA-Public Use
  Company Number: HR-009507513-1904HRV006695

PATIENT
  Age: 63 Year
  Sex: Male

DRUGS (4)
  1. INSULIN [Concomitant]
     Active Substance: INSULIN NOS
  2. METFORMIN [Concomitant]
     Active Substance: METFORMIN HYDROCHLORIDE
  3. ALOGLIPTIN. [Concomitant]
     Active Substance: ALOGLIPTIN
  4. KEYTRUDA [Suspect]
     Active Substance: PEMBROLIZUMAB
     Indication: NON-SMALL CELL LUNG CANCER
     Dosage: UNK
     Dates: start: 201810

REACTIONS (10)
  - Colitis [Unknown]
  - Hypophysitis [Unknown]
  - Hypoglycaemia [Unknown]
  - Eczema [Unknown]
  - Anal abscess [Unknown]
  - Clostridium difficile colitis [Unknown]
  - Toxicity to various agents [Unknown]
  - Skin ulcer [Unknown]
  - Oedema peripheral [Unknown]
  - Skin disorder [Unknown]
